FAERS Safety Report 5832084-8 (Version None)
Quarter: 2008Q3

REPORT INFORMATION
  Report Type: 
  Country: None (occurrence: None)
  Receive Date: 20080731
  Receipt Date: 20080724
  Transmission Date: 20090109
  Serious: Yes (Death, Congenital Anomaly)
  Sender: FDA-Public Use
  Company Number: 1000000252

PATIENT
  Sex: Male

DRUGS (1)
  1. CELEXA [Suspect]
     Dosage: TRANSPLACENTAL
     Route: 064
     Dates: end: 20040604

REACTIONS (3)
  - ANOMALOUS PULMONARY VENOUS CONNECTION [None]
  - DEATH NEONATAL [None]
  - MATERNAL DRUGS AFFECTING FOETUS [None]
